FAERS Safety Report 17572294 (Version 4)
Quarter: 2020Q2

REPORT INFORMATION
  Report Type: Spontaneous
  Country: US (occurrence: US)
  Receive Date: 20200323
  Receipt Date: 20200514
  Transmission Date: 20200713
  Serious: Yes (Hospitalization)
  Sender: FDA-Public Use
  Company Number: US-CELGENEUS-USA-20200306480

PATIENT
  Age: 66 Year
  Sex: Male
  Weight: 76.27 kg

DRUGS (6)
  1. POMALYST [Suspect]
     Active Substance: POMALIDOMIDE
     Indication: PLASMA CELL MYELOMA
     Dosage: 4 MILLIGRAM
     Route: 048
     Dates: start: 20200306, end: 20200317
  2. DARATUMUMAB [Concomitant]
     Active Substance: DARATUMUMAB
     Indication: PLASMA CELL MYELOMA
     Route: 041
     Dates: start: 20200306
  3. ACYCLOVIR. [Concomitant]
     Active Substance: ACYCLOVIR
     Indication: PLASMA CELL MYELOMA
     Dosage: 800 MILLIGRAM
     Route: 048
     Dates: start: 201912
  4. POMALYST [Suspect]
     Active Substance: POMALIDOMIDE
     Dosage: 3 MILLIGRAM
     Route: 048
     Dates: start: 202003
  5. DEXAMETHASONE. [Concomitant]
     Active Substance: DEXAMETHASONE
     Indication: PLASMA CELL MYELOMA
     Dosage: 40 MILLIGRAM
     Route: 048
     Dates: start: 20200306
  6. BACTRIM DS [Concomitant]
     Active Substance: SULFAMETHOXAZOLE\TRIMETHOPRIM
     Indication: PLASMA CELL MYELOMA
     Dosage: EVERY MONDAY, WEDNESDAY AND FRIDAY
     Route: 048
     Dates: start: 202001

REACTIONS (5)
  - Full blood count decreased [Recovered/Resolved]
  - Acute kidney injury [Recovered/Resolved]
  - Febrile neutropenia [Recovered/Resolved]
  - Alopecia [Unknown]
  - Atrial flutter [Recovered/Resolved]

NARRATIVE: CASE EVENT DATE: 202003
